FAERS Safety Report 6999213-4 (Version None)
Quarter: 2010Q3

REPORT INFORMATION
  Report Type: 
  Country: None (occurrence: None)
  Receive Date: 20100920
  Receipt Date: 20100311
  Transmission Date: 20110219
  Serious: No
  Sender: FDA-Public Use
  Company Number: US-ASTRAZENECA-2010SE04219

PATIENT
  Age: 52 Year
  Sex: Male
  Weight: 158.8 kg

DRUGS (2)
  1. SEROQUEL [Suspect]
     Indication: DEPRESSION
     Route: 048
     Dates: start: 20030401
  2. DEPAKOTE [Concomitant]
     Dates: start: 20030401

REACTIONS (5)
  - BACK INJURY [None]
  - BLOOD TRIGLYCERIDES INCREASED [None]
  - OBESITY [None]
  - TYPE 2 DIABETES MELLITUS [None]
  - WEIGHT INCREASED [None]
